FAERS Safety Report 8442829-9 (Version None)
Quarter: 2012Q2

REPORT INFORMATION
  Report Type: 
  Country: None (occurrence: None)
  Receive Date: 20120323
  Receipt Date: 20110609
  Transmission Date: 20120825
  Serious: Yes (Hospitalization)
  Sender: FDA-Public Use
  Company Number: 163-21880-11061453

PATIENT
  Age: 73 Year
  Sex: Male

DRUGS (5)
  1. WARFARIN SODIUM [Concomitant]
  2. ENALAPRIL MALEATE [Concomitant]
  3. DEXAMETHASONE [Concomitant]
  4. ADVAIR DISKUS (SERETRIDE MITE) [Concomitant]
  5. REVLIMID [Suspect]
     Indication: MULTIPLE MYELOMA
     Dosage: 10 MG, 1 IN 1 D, PO
     Route: 048
     Dates: start: 20080930, end: 20110101

REACTIONS (1)
  - PNEUMONIA [None]
